FAERS Safety Report 4350288-0 (Version None)
Quarter: 2004Q2

REPORT INFORMATION
  Report Type: 
  Country: None (occurrence: None)
  Receive Date: 20040429
  Receipt Date: 20040419
  Transmission Date: 20050107
  Serious: Yes (Other)
  Sender: FDA-Public Use
  Company Number: US-MERCK-0404USA01728

PATIENT
  Age: 38 Year
  Sex: Female
  Weight: 90 kg

DRUGS (6)
  1. LIPITOR [Concomitant]
     Route: 065
  2. ZETIA [Suspect]
     Route: 048
     Dates: end: 20040101
  3. TRICOR [Concomitant]
     Route: 065
  4. SYNTHROID [Concomitant]
     Route: 065
  5. PAXIL CR [Concomitant]
     Route: 065
  6. ACTOS [Concomitant]
     Route: 065

REACTIONS (2)
  - BLOOD TRIGLYCERIDES INCREASED [None]
  - XANTHOMA [None]
